FAERS Safety Report 5379231-2 (Version None)
Quarter: 2007Q3

REPORT INFORMATION
  Report Type: 
  Country: None (occurrence: None)
  Receive Date: 20070705
  Receipt Date: 20070626
  Transmission Date: 20080115
  Serious: Yes (Other)
  Sender: FDA-Public Use
  Company Number: DE-PFIZER INC-2007053596

PATIENT
  Age: 68 Year
  Sex: Male

DRUGS (2)
  1. BEXTRA [Suspect]
     Indication: SCIATICA
  2. DYNASTAT [Suspect]
     Indication: SCIATICA
     Dosage: DAILY DOSE:40MG
     Route: 030

REACTIONS (5)
  - BODY TEMPERATURE INCREASED [None]
  - DYSPNOEA [None]
  - ORAL DISORDER [None]
  - RASH ERYTHEMATOUS [None]
  - SWELLING FACE [None]
